FAERS Safety Report 4870099-7 (Version None)
Quarter: 2005Q4

REPORT INFORMATION
  Report Type: 
  Country: None (occurrence: None)
  Receive Date: 20051227
  Receipt Date: 20051215
  Transmission Date: 20060501
  Serious: Yes (Other)
  Sender: FDA-Public Use
  Company Number: 2005168721

PATIENT
  Age: 36 Year
  Sex: Female
  Weight: 77.1115 kg

DRUGS (1)
  1. BENADRYL [Suspect]
     Indication: EAR INFECTION
     Dosage: 2 GELCAPS ONCE, ORAL
     Route: 048
     Dates: start: 20030901, end: 20030901

REACTIONS (1)
  - ANAPHYLACTIC SHOCK [None]
